FAERS Safety Report 6511188-0 (Version None)
Quarter: 2009Q4

REPORT INFORMATION
  Report Type: 
  Country: None (occurrence: None)
  Receive Date: 20091217
  Receipt Date: 20091201
  Transmission Date: 20100525
  Serious: Yes (Hospitalization)
  Sender: FDA-Public Use
  Company Number: 002802

PATIENT
  Sex: 0

DRUGS (2)
  1. KEPPRA [Suspect]
  2. DILANTIN [Suspect]

REACTIONS (2)
  - CONVULSION [None]
  - HAEMATOMA [None]
